FAERS Safety Report 16625400 (Version 4)
Quarter: 2019Q3

REPORT INFORMATION
  Report Type: Spontaneous
  Country: PR (occurrence: PR)
  Receive Date: 20190724
  Receipt Date: 20190919
  Transmission Date: 20191004
  Serious: No
  Sender: FDA-Public Use
  Company Number: PR-PFIZER INC-2019313411

PATIENT
  Age: 52 Year
  Sex: Male
  Weight: 93.89 kg

DRUGS (4)
  1. LYRICA [Suspect]
     Active Substance: PREGABALIN
     Indication: STIFF PERSON SYNDROME
     Dosage: 300 MG, DAILY [100MG CAPSULE IN THE MORNING AND TWO 100MG CAPSULES AT BEDTIME]
     Dates: end: 201907
  2. LYRICA CR [Suspect]
     Active Substance: PREGABALIN
     Dosage: 165 MG, UNK
     Dates: end: 201907
  3. LYRICA [Suspect]
     Active Substance: PREGABALIN
     Indication: FIBROMYALGIA
     Dosage: UNK
  4. LYRICA [Suspect]
     Active Substance: PREGABALIN
     Indication: DYSTONIA

REACTIONS (7)
  - Dizziness [Recovering/Resolving]
  - Withdrawal syndrome [Unknown]
  - Nausea [Recovered/Resolved]
  - Feeling abnormal [Unknown]
  - Dehydration [Unknown]
  - Malaise [Unknown]
  - Vomiting [Unknown]

NARRATIVE: CASE EVENT DATE: 201907
